FAERS Safety Report 4988672-4 (Version None)
Quarter: 2006Q2

REPORT INFORMATION
  Report Type: 
  Country: None (occurrence: None)
  Receive Date: 20060502
  Receipt Date: 20060104
  Transmission Date: 20061013
  Serious: Yes (Hospitalization)
  Sender: FDA-Public Use
  Company Number: US-MERCK-0601USA00583

PATIENT
  Age: 61 Year
  Sex: Male
  Weight: 86 kg

DRUGS (2)
  1. VIOXX [Suspect]
     Indication: OSTEOARTHRITIS
     Route: 048
     Dates: start: 20030114, end: 20031217
  2. ASPIRIN [Concomitant]
     Route: 065
     Dates: start: 20010101

REACTIONS (17)
  - ANGINA PECTORIS [None]
  - BLOOD CHOLESTEROL INCREASED [None]
  - CATARACT [None]
  - CORONARY ARTERY DISEASE [None]
  - CORONARY ARTERY OCCLUSION [None]
  - CORONARY ARTERY STENOSIS [None]
  - HYPERLIPIDAEMIA [None]
  - HYPERTENSION [None]
  - MYOCARDIAL INFARCTION [None]
  - NECK PAIN [None]
  - OBSTRUCTION [None]
  - PHARYNGITIS [None]
  - RIB FRACTURE [None]
  - SINUSITIS [None]
  - SKIN LESION [None]
  - SKIN PAPILLOMA [None]
  - STENT OCCLUSION [None]
